FAERS Safety Report 6570616-5 (Version None)
Quarter: 2010Q1

REPORT INFORMATION
  Report Type: 
  Country: None (occurrence: None)
  Receive Date: 20100202
  Receipt Date: 20100202
  Transmission Date: 20100710
  Serious: No
  Sender: FDA-Public Use
  Company Number: None

PATIENT
  Age: 38 Year
  Sex: Female
  Weight: 104.3273 kg

DRUGS (2)
  1. YAZ [Suspect]
     Indication: ORAL CONTRACEPTION
     Dosage: 1 TABLET 1X DAILY ORAL
     Route: 048
     Dates: start: 20031101, end: 20080101
  2. YAZ [Suspect]
     Indication: ORAL CONTRACEPTION
     Dosage: 1 TABLET 1X DAILY ORAL
     Route: 048
     Dates: start: 20090401, end: 20090601

REACTIONS (1)
  - PULMONARY EMBOLISM [None]
